FAERS Safety Report 6841838-0 (Version None)
Quarter: 2010Q3

REPORT INFORMATION
  Report Type: 
  Country: None (occurrence: None)
  Receive Date: 20100714
  Receipt Date: 20070814
  Transmission Date: 20110219
  Serious: No
  Sender: FDA-Public Use
  Company Number: US-PFIZER INC-2007058650

PATIENT
  Sex: Male
  Weight: 126.8 kg

DRUGS (5)
  1. CHANTIX [Suspect]
     Indication: SMOKING CESSATION THERAPY
     Dates: start: 20070501
  2. WARFARIN SODIUM [Concomitant]
     Indication: ANTICOAGULANT THERAPY
  3. COZAAR [Concomitant]
  4. DIGOXIN [Concomitant]
     Indication: ATRIAL FIBRILLATION
  5. AMLODIPINE [Concomitant]
     Indication: ATRIAL FIBRILLATION

REACTIONS (2)
  - FLATULENCE [None]
  - POLLAKIURIA [None]
